FAERS Safety Report 6648256-9 (Version None)
Quarter: 2010Q1

REPORT INFORMATION
  Report Type: 
  Country: None (occurrence: None)
  Receive Date: 20100324
  Receipt Date: 20100317
  Transmission Date: 20100710
  Serious: Yes (Hospitalization)
  Sender: FDA-Public Use
  Company Number: RU-ROCHE-652094

PATIENT
  Sex: Female
  Weight: 80 kg

DRUGS (9)
  1. BEVACIZUMAB [Suspect]
     Indication: RENAL CANCER
     Route: 042
     Dates: start: 20090702, end: 20090806
  2. BEVACIZUMAB [Suspect]
     Route: 042
     Dates: start: 20090903
  3. INTERFERON ALFA [Suspect]
     Indication: RENAL CELL CARCINOMA
     Dosage: DOSE REPORTED AS 9 ME
     Route: 058
     Dates: start: 20090702, end: 20090806
  4. INTERFERON ALFA [Suspect]
     Route: 058
  5. INTERFERON ALFA [Suspect]
     Route: 058
     Dates: start: 20090903
  6. GLIBENCLAMIDE [Suspect]
     Indication: DIABETES MELLITUS
     Route: 065
     Dates: start: 20060101, end: 20090813
  7. GLIBENCLAMIDE [Suspect]
     Route: 065
  8. BUFORMIN [Suspect]
     Indication: DIABETES MELLITUS
     Route: 065
     Dates: start: 20060101, end: 20090813
  9. BUFORMIN [Suspect]
     Route: 065

REACTIONS (2)
  - HEPATITIS TOXIC [None]
  - TRANSAMINASES INCREASED [None]
